FAERS Safety Report 9336759 (Version 1)
Quarter: 2013Q2

REPORT INFORMATION
  Report Type: Spontaneous
  Country: DE (occurrence: DE)
  Receive Date: 20130607
  Receipt Date: 20130607
  Transmission Date: 20140414
  Serious: Yes (Life-Threatening, Hospitalization, Congenital Anomaly)
  Sender: FDA-Public Use
  Company Number: GXKR2013DE002037

PATIENT
  Sex: 0

DRUGS (2)
  1. METOCLOPRAMIDE [Suspect]
     Route: 064
     Dates: start: 20070905, end: 20070913
  2. LOPERAMIDE [Suspect]
     Route: 064
     Dates: start: 20070905, end: 20070913

REACTIONS (1)
  - Urethral valves [Recovered/Resolved with Sequelae]
